FAERS Safety Report 10471679 (Version 4)
Quarter: 2015Q3

REPORT INFORMATION
  Report Type: Report from Study
  Country: US (occurrence: US)
  Receive Date: 20140923
  Receipt Date: 20150714
  Transmission Date: 20151125
  Serious: Yes (Other)
  Sender: FDA-Public Use
  Company Number: US-ALEXION PHARMACEUTICALS INC-A201203152

PATIENT

DRUGS (1)
  1. SOLIRIS [Suspect]
     Active Substance: ECULIZUMAB
     Indication: PAROXYSMAL NOCTURNAL HAEMOGLOBINURIA
     Dosage: UNK
     Route: 042

REACTIONS (13)
  - Platelet transfusion [Unknown]
  - Neck pain [Unknown]
  - Fatigue [Unknown]
  - Headache [Unknown]
  - Platelet count decreased [Unknown]
  - Chromaturia [Unknown]
  - Chest pain [Unknown]
  - Unevaluable event [Unknown]
  - Packed red blood cell transfusion [Unknown]
  - Iron overload [Unknown]
  - Dehydration [Unknown]
  - Back pain [Unknown]
  - Influenza like illness [Unknown]
